FAERS Safety Report 7562386-9 (Version None)
Quarter: 2011Q2

REPORT INFORMATION
  Report Type: 
  Country: None (occurrence: None)
  Receive Date: 20110614
  Receipt Date: 20110608
  Transmission Date: 20111010
  Serious: Yes (Other)
  Sender: FDA-Public Use
  Company Number: ACO_23820_2011

PATIENT
  Age: 52 Year
  Sex: Female

DRUGS (1)
  1. AMPYRA [Suspect]
     Indication: PRODUCT USED FOR UNKNOWN INDICATION
     Dosage: 10 MG, Q 12 HRS, ORAL
     Route: 048
     Dates: start: 20110427, end: 20110428

REACTIONS (5)
  - DISTURBANCE IN ATTENTION [None]
  - AMNESIA [None]
  - TREMOR [None]
  - PSYCHOMOTOR HYPERACTIVITY [None]
  - ANXIETY [None]
